FAERS Safety Report 17802870 (Version 2)
Quarter: 2020Q2

REPORT INFORMATION
  Report Type: Spontaneous
  Country: US (occurrence: US)
  Receive Date: 20200519
  Receipt Date: 20200531
  Transmission Date: 20200714
  Serious: Yes (Hospitalization)
  Sender: FDA-Public Use
  Company Number: US-TEVA-2020-US-1236809

PATIENT
  Age: 44 Year
  Sex: Female

DRUGS (1)
  1. FLUOXETINE [Suspect]
     Active Substance: FLUOXETINE HYDROCHLORIDE
     Indication: OVERDOSE
     Route: 065

REACTIONS (6)
  - Toxicity to various agents [Recovering/Resolving]
  - Hemiparesis [Recovering/Resolving]
  - Reversible cerebral vasoconstriction syndrome [Recovering/Resolving]
  - Speech disorder [Recovering/Resolving]
  - Overdose [Unknown]
  - Ischaemic stroke [Recovering/Resolving]
